FAERS Safety Report 9516504 (Version 1)
Quarter: 2013Q1

REPORT INFORMATION
  Report Type: Spontaneous
  Country: US (occurrence: None)
  Receive Date: 20130305
  Receipt Date: 20130305
  Transmission Date: 20140127
  Serious: Yes (Other)
  Sender: FDA-Public Use
  Company Number: 163-21880-12120417

PATIENT
  Age: 62 Year
  Sex: Female

DRUGS (1)
  1. REVLIMID ?(LENALIDOMIDE 10 MILLIGRAM, CAPSULES) [Suspect]
     Indication: PLASMA CELL MYELOMA
     Dosage: 10 MG, 14 IN 14 D, PO
     Route: 048
     Dates: start: 20081028

REACTIONS (1)
  - Laryngitis [None]
